FAERS Safety Report 12977089 (Version 2)
Quarter: 2016Q4

REPORT INFORMATION
  Report Type: Report from Study
  Country: DE (occurrence: DE)
  Receive Date: 20161128
  Receipt Date: 20161207
  Transmission Date: 20170207
  Serious: Yes (Hospitalization, Other)
  Sender: FDA-Public Use
  Company Number: DE-BRISTOL-MYERS SQUIBB COMPANY-BMS-2016-100192

PATIENT
  Age: 77 Year
  Sex: Female

DRUGS (1)
  1. APIXABAN [Suspect]
     Active Substance: APIXABAN
     Indication: CEREBROVASCULAR ACCIDENT PROPHYLAXIS
     Dosage: 5 MG, BID
     Route: 048
     Dates: start: 20160312, end: 20160929

REACTIONS (5)
  - Peritonsillar abscess [Recovered/Resolved]
  - Colonoscopy [Unknown]
  - Epistaxis [Recovered/Resolved]
  - Sclerotherapy [Unknown]
  - Polyp [Unknown]

NARRATIVE: CASE EVENT DATE: 20160615
